FAERS Safety Report 5860904-X (Version None)
Quarter: 2008Q3

REPORT INFORMATION
  Report Type: 
  Country: None (occurrence: None)
  Receive Date: 20080827
  Receipt Date: 20080102
  Transmission Date: 20090109
  Serious: No
  Sender: FDA-Public Use
  Company Number: US-ABBOTT-08P-163-0432391-00

PATIENT
  Sex: Male
  Weight: 81.72 kg

DRUGS (10)
  1. NIASPAN [Suspect]
     Indication: BLOOD CHOLESTEROL INCREASED
     Route: 048
     Dates: start: 20060101, end: 20070301
  2. NIASPAN [Suspect]
     Route: 048
     Dates: start: 20060101
  3. NIASPAN [Suspect]
     Route: 048
     Dates: start: 20070301
  4. ALLOPURINOL [Concomitant]
     Indication: PROPHYLAXIS
  5. ALLOPURINOL [Concomitant]
     Indication: NEPHROLITHIASIS
  6. LOTREL [Concomitant]
     Indication: HYPERTENSION
  7. METOPROLOL SUCCINATE [Concomitant]
     Indication: HYPERTENSION
  8. CLOPIDOGREL [Concomitant]
     Indication: THROMBOSIS PROPHYLAXIS
  9. EZETIMIBE [Concomitant]
     Indication: BLOOD CHOLESTEROL INCREASED
  10. ACETYLSALICYLIC ACID SRT [Concomitant]
     Indication: THROMBOSIS PROPHYLAXIS

REACTIONS (1)
  - BLOOD GLUCOSE INCREASED [None]
